FAERS Safety Report 24391317 (Version 1)
Quarter: 2024Q4

REPORT INFORMATION
  Report Type: Spontaneous
  Country: US (occurrence: None)
  Receive Date: 20241002
  Receipt Date: 20241002
  Transmission Date: 20250115
  Serious: No
  Sender: Public
  Company Number: None

PATIENT
  Age: 86 Year
  Sex: Male
  Weight: 82.68 kg

DRUGS (1)
  1. JAYPIRCA [Suspect]
     Active Substance: PIRTOBRUTINIB
     Indication: Mantle cell lymphoma
     Dosage: FREQUENCY : DAILY;?
     Route: 048
     Dates: start: 20240717

REACTIONS (2)
  - Clavicle fracture [None]
  - Intentional dose omission [None]

NARRATIVE: CASE EVENT DATE: 20241001
